FAERS Safety Report 6173904-X (Version None)
Quarter: 2009Q2

REPORT INFORMATION
  Report Type: 
  Country: None (occurrence: None)
  Receive Date: 20090429
  Receipt Date: 20090429
  Transmission Date: 20091009
  Serious: Yes (Life-Threatening)
  Sender: FDA-Public Use
  Company Number: None

PATIENT
  Sex: Male
  Weight: 75 kg

DRUGS (11)
  1. AZITHROMYCIN [Suspect]
     Indication: INFECTION
     Dosage: 500MG DAILY PO
     Route: 048
     Dates: start: 20090331, end: 20090402
  2. SOLU-MEDROL [Concomitant]
  3. IMDUR [Concomitant]
  4. ENALAPRIL MALEATE [Concomitant]
  5. PLAQUENIL [Concomitant]
  6. NICOTINE [Concomitant]
  7. PEPCID [Concomitant]
  8. COREG [Concomitant]
  9. TYLENOL WITH COEINE [Concomitant]
  10. . [Concomitant]
  11. LASIX [Concomitant]

REACTIONS (6)
  - COAGULOPATHY [None]
  - HEPATIC FUNCTION ABNORMAL [None]
  - ISCHAEMIC HEPATITIS [None]
  - LIVER INJURY [None]
  - NAUSEA [None]
  - RETCHING [None]
